FAERS Safety Report 10808062 (Version 1)
Quarter: 2015Q1

REPORT INFORMATION
  Report Type: Report from Study
  Country: US (occurrence: US)
  Receive Date: 20150217
  Receipt Date: 20150217
  Transmission Date: 20150721
  Serious: No
  Sender: FDA-Public Use
  Company Number: US-ABBVIE-14K-163-1261353-00

PATIENT
  Age: 59 Year
  Sex: Female

DRUGS (7)
  1. IBUPROFEN. [Concomitant]
     Active Substance: IBUPROFEN
     Indication: ANKYLOSING SPONDYLITIS
  2. TRAMADOL [Concomitant]
     Active Substance: TRAMADOL
     Indication: INSOMNIA
     Dosage: 1 OR 2 TABLETS AT BED TIME
  3. SYNTHROID [Suspect]
     Active Substance: LEVOTHYROXINE SODIUM
     Indication: BLOOD THYROID STIMULATING HORMONE INCREASED
     Dates: start: 201405
  4. HUMIRA [Suspect]
     Active Substance: ADALIMUMAB
     Indication: ANKYLOSING SPONDYLITIS
     Dates: start: 20140621
  5. SYNTHROID [Suspect]
     Active Substance: LEVOTHYROXINE SODIUM
     Indication: BLOOD THYROID STIMULATING HORMONE INCREASED
     Dates: end: 201405
  6. SYNTHROID [Suspect]
     Active Substance: LEVOTHYROXINE SODIUM
     Dates: start: 20140702
  7. IBUPROFEN. [Concomitant]
     Active Substance: IBUPROFEN
     Indication: PAIN

REACTIONS (3)
  - Therapeutic response unexpected [Unknown]
  - Blood thyroid stimulating hormone decreased [Unknown]
  - Drug effect decreased [Not Recovered/Not Resolved]

NARRATIVE: CASE EVENT DATE: 201406
